FAERS Safety Report 17408717 (Version 2)
Quarter: 2020Q1

REPORT INFORMATION
  Report Type: Spontaneous
  Country: GB (occurrence: GB)
  Receive Date: 20200212
  Receipt Date: 20200218
  Transmission Date: 20200409
  Serious: Yes (Hospitalization)
  Sender: FDA-Public Use
  Company Number: GB-VERTEX PHARMACEUTICALS-2020-002755

PATIENT
  Age: 23 Year
  Sex: Female
  Weight: 39 kg

DRUGS (23)
  1. MORPHINE SULFATE. [Concomitant]
     Active Substance: MORPHINE SULFATE
  2. OLANZAPINE. [Concomitant]
     Active Substance: OLANZAPINE
  3. LEVEMIR [Concomitant]
     Active Substance: INSULIN DETEMIR
  4. VITAMIN D [Concomitant]
     Active Substance: VITAMIN D NOS
  5. ALPHA-TOCOPHEROL [Concomitant]
     Active Substance: .ALPHA.-TOCOPHEROL
  6. LORAZEPAM. [Concomitant]
     Active Substance: LORAZEPAM
  7. ELEXACAFTOR/TEZACAFTOR/IVACAFTOR [Suspect]
     Active Substance: ELEXACAFTOR\IVACAFTOR\TEZACAFTOR
     Indication: CYSTIC FIBROSIS
     Dosage: 2 DOSAGE FORM (100/50/75MG), QD IN THE MORNING
     Route: 048
     Dates: start: 20191126
  8. HUMULIN M3 [Concomitant]
     Active Substance: INSULIN HUMAN
  9. AZITHROMYCIN ANHYDROUS. [Concomitant]
     Active Substance: AZITHROMYCIN ANHYDROUS
  10. COLECALCIFEROL [Concomitant]
     Active Substance: CHOLECALCIFEROL
  11. KALYDECO [Suspect]
     Active Substance: IVACAFTOR
     Indication: CYSTIC FIBROSIS
     Dosage: 150 MG, QD AT NIGHT
     Route: 048
     Dates: start: 20191126
  12. CREON [Concomitant]
     Active Substance: PANCRELIPASE AMYLASE\PANCRELIPASE LIPASE\PANCRELIPASE PROTEASE
  13. URSODEOXYCHOLIC ACID [Concomitant]
     Active Substance: URSODIOL
  14. SALBUTAMOL [Concomitant]
     Active Substance: ALBUTEROL
  15. SERETIDE [Concomitant]
     Active Substance: FLUTICASONE PROPIONATE\SALMETEROL XINAFOATE
  16. PREDNISOLONE. [Concomitant]
     Active Substance: PREDNISOLONE
  17. TOBRAMYCIN. [Concomitant]
     Active Substance: TOBRAMYCIN
  18. FIASP [Concomitant]
     Active Substance: INSULIN ASPART
  19. AZTREONAM LYSINE [Concomitant]
     Active Substance: AZTREONAM LYSINE
  20. RETINOL [Concomitant]
     Active Substance: RETINOL
  21. DORNASE ALFA. [Concomitant]
     Active Substance: DORNASE ALFA
  22. SPIRIVA [Concomitant]
     Active Substance: TIOTROPIUM BROMIDE MONOHYDRATE
  23. FERROUS FUMARATE [Concomitant]
     Active Substance: FERROUS FUMARATE

REACTIONS (1)
  - Haemoptysis [Recovered/Resolved]

NARRATIVE: CASE EVENT DATE: 20191201
